FAERS Safety Report 10280521 (Version 4)
Quarter: 2014Q3

REPORT INFORMATION
  Report Type: Spontaneous
  Country: JP (occurrence: JP)
  Receive Date: 20140707
  Receipt Date: 20140821
  Transmission Date: 20150326
  Serious: Yes (Hospitalization, Other)
  Sender: FDA-Public Use
  Company Number: JP-B.I. PHARMACEUTICALS,INC./RIDGEFIELD-2014-BI-28139GD

PATIENT
  Age: 65 Year
  Sex: Female
  Weight: 68.6 kg

DRUGS (6)
  1. PRAMIPEXOLE [Suspect]
     Active Substance: PRAMIPEXOLE
     Indication: PARKINSON^S DISEASE
     Dosage: 0.25 MG
     Route: 048
     Dates: start: 20071016, end: 20071016
  2. PRAMIPEXOLE [Suspect]
     Active Substance: PRAMIPEXOLE
     Dosage: 1.5 MG
     Route: 048
     Dates: start: 20080104, end: 20080124
  3. PRAMIPEXOLE [Suspect]
     Active Substance: PRAMIPEXOLE
     Dosage: 0.5 MG
     Route: 048
     Dates: start: 20071017, end: 20071017
  4. PRAMIPEXOLE [Suspect]
     Active Substance: PRAMIPEXOLE
     Dosage: 0.75 MG
     Route: 048
     Dates: start: 20071018, end: 20080103
  5. LEVODOPA/CARBIDOPA [Suspect]
     Active Substance: CARBIDOPA\LEVODOPA
     Indication: PARKINSON^S DISEASE
     Dosage: 300 MG
     Route: 065
  6. PRAMIPEXOLE [Suspect]
     Active Substance: PRAMIPEXOLE
     Dosage: 2.25 MG
     Route: 048

REACTIONS (10)
  - Elevated mood [Unknown]
  - Logorrhoea [Unknown]
  - Hallucination [Recovered/Resolved]
  - Hallucination, auditory [Unknown]
  - Parkinson^s disease psychosis [Unknown]
  - Delusional disorder, somatic type [Unknown]
  - Delusion [Recovered/Resolved]
  - Major depression [Unknown]
  - Persecutory delusion [Unknown]
  - Somatic hallucination [Recovered/Resolved]

NARRATIVE: CASE EVENT DATE: 20071023
